FAERS Safety Report 14588412 (Version 2)
Quarter: 2018Q1

REPORT INFORMATION
  Report Type: Spontaneous
  Country: US (occurrence: US)
  Receive Date: 20180301
  Receipt Date: 20180330
  Transmission Date: 20180509
  Serious: Yes (Other)
  Sender: FDA-Public Use
  Company Number: US-TEVA-2018-US-864540

PATIENT
  Age: 2 Year
  Sex: Female

DRUGS (15)
  1. CYCLOPHOSPHAMIDE. [Concomitant]
     Active Substance: CYCLOPHOSPHAMIDE
     Indication: BONE MARROW CONDITIONING REGIMEN
     Route: 065
  2. MEROPENEM. [Concomitant]
     Active Substance: MEROPENEM
     Dosage: 40 MG/KG/DAY
     Route: 065
  3. METHYLPREDNISOLONE. [Suspect]
     Active Substance: METHYLPREDNISOLONE
     Indication: IMMUNOSUPPRESSANT DRUG THERAPY
     Dosage: 1 MG/KG/DAY ON DAY+7, DECREASED GRADUALLY TO 0.5 MG/KG
     Route: 065
  4. MYCOPHENOLATE-MOFETIL [Suspect]
     Active Substance: MYCOPHENOLATE MOFETIL
     Indication: IMMUNOSUPPRESSANT DRUG THERAPY
     Dosage: 10 MG/KG/DAY FROM DAY +25 TO DAY +61
     Route: 065
  5. CIDOFOVIR. [Concomitant]
     Active Substance: CIDOFOVIR
     Indication: ANTIVIRAL PROPHYLAXIS
     Dosage: 4 MG/KG TWICE A WEEK
     Route: 065
  6. METHYLPREDNISOLONE. [Suspect]
     Active Substance: METHYLPREDNISOLONE
     Indication: IMMUNOSUPPRESSANT DRUG THERAPY
     Dosage: 1 MG/KG/DAY, ON DAY +55, THE DOSE WAS INCREASED TO 2 MG/KG/DAY
     Route: 065
  7. CYCLOSPORINE. [Suspect]
     Active Substance: CYCLOSPORINE
     Indication: IMMUNOSUPPRESSANT DRUG THERAPY
     Dosage: 5 MG/KG/DAY ON DAY0 TO DAY+7, DECREASED GRADUALLY TO 1.3 MG/KG/DAY BY DAY +23
     Route: 042
  8. CYCLOSPORINE. [Suspect]
     Active Substance: CYCLOSPORINE
     Indication: IMMUNOSUPPRESSANT DRUG THERAPY
     Dosage: 1.3 MG/KG/DAY BY DAY +23
  9. VALACICLOVIR [Suspect]
     Active Substance: VALACYCLOVIR HYDROCHLORIDE
     Indication: ANTIVIRAL PROPHYLAXIS
     Dosage: 20 MG/KG/DAY
     Route: 065
  10. CEFTAZIDIME. [Concomitant]
     Active Substance: CEFTAZIDIME
     Dosage: 150 MG/KG/DAY
     Route: 065
  11. FLUDARABINE [Suspect]
     Active Substance: FLUDARABINE PHOSPHATE
     Indication: BONE MARROW CONDITIONING REGIMEN
     Dosage: 30 MG/M2/DAY FROM DAY -9 TO DAY-5
  12. METHOTREXATE. [Suspect]
     Active Substance: METHOTREXATE
     Indication: IMMUNOSUPPRESSANT DRUG THERAPY
     Dosage: 15 MG/M2 ON DAY+1 AND DAY +5
     Route: 065
  13. METHYLPREDNISOLONE. [Suspect]
     Active Substance: METHYLPREDNISOLONE
     Indication: IMMUNOSUPPRESSANT DRUG THERAPY
     Dosage: 0.5 MG/KG, ON DAY +46, IT WAS INCREASED TO 1 MG/KG/DAY
     Route: 065
  14. ACYCLOVIR. [Concomitant]
     Active Substance: ACYCLOVIR
     Indication: ANTIVIRAL PROPHYLAXIS
     Dosage: 30 MG/KG/DAY
     Route: 042
  15. CIPROFLOXACIN. [Concomitant]
     Active Substance: CIPROFLOXACIN
     Dosage: 20 MG/KG/DAY
     Route: 065

REACTIONS (4)
  - Fungaemia [Unknown]
  - Fungal infection [Unknown]
  - Aspergillus infection [Unknown]
  - Penicillium infection [Unknown]
